FAERS Safety Report 21357582 (Version 2)
Quarter: 2022Q4

REPORT INFORMATION
  Report Type: Spontaneous
  Country: US (occurrence: US)
  Receive Date: 20220921
  Receipt Date: 20221215
  Transmission Date: 20230112
  Serious: Yes (Other)
  Sender: FDA-Public Use
  Company Number: US-JNJFOC-20220924140

PATIENT
  Age: 67 Year
  Sex: Female

DRUGS (20)
  1. INVEGA [Suspect]
     Active Substance: PALIPERIDONE
     Indication: Schizoaffective disorder
     Route: 048
     Dates: start: 2022, end: 20220905
  2. HALDOL [Suspect]
     Active Substance: HALOPERIDOL
     Indication: Schizoaffective disorder
     Route: 030
  3. GEMFIBROZIL [Concomitant]
     Active Substance: GEMFIBROZIL
     Indication: Product used for unknown indication
  4. CLONAZEPAM [Concomitant]
     Active Substance: CLONAZEPAM
     Indication: Product used for unknown indication
  5. AMITRIPTYLINE [Concomitant]
     Active Substance: AMITRIPTYLINE
     Indication: Panic disorder
  6. FISH OIL [Concomitant]
     Active Substance: FISH OIL
     Indication: Product used for unknown indication
     Dosage: AT BEDTIME
  7. NIASPAN [Concomitant]
     Active Substance: NIACIN
     Indication: Product used for unknown indication
     Dosage: EVERY NIGHT AT BEDTIME
  8. NIASPAN [Concomitant]
     Active Substance: NIACIN
  9. CLONAZEPAM [Concomitant]
     Active Substance: CLONAZEPAM
     Indication: Panic disorder
  10. ELAVIL [Concomitant]
     Active Substance: AMITRIPTYLINE HYDROCHLORIDE
     Indication: Pain
  11. ELAVIL [Concomitant]
     Active Substance: AMITRIPTYLINE HYDROCHLORIDE
     Indication: Sleep disorder therapy
  12. TRAZODONE [Concomitant]
     Active Substance: TRAZODONE HYDROCHLORIDE
  13. FAMOTIDINE [Concomitant]
     Active Substance: FAMOTIDINE
  14. LOVAZA [Concomitant]
     Active Substance: OMEGA-3-ACID ETHYL ESTERS
     Dosage: FREQUENCY:4, FREQUENCY TIME: 1 (HOUR OF SLEEP )
  15. VITAMIN D3 [Concomitant]
     Active Substance: CHOLECALCIFEROL
     Dosage: 6 (IU INTERNATIONAL UNIT(S) )
  16. ELIDEL [Concomitant]
     Active Substance: PIMECROLIMUS
     Indication: Pain
  17. LOPID [Concomitant]
     Active Substance: GEMFIBROZIL
     Indication: Blood cholesterol
  18. LYRICA [Concomitant]
     Active Substance: PREGABALIN
     Indication: Fibromyalgia
  19. FLEXERIL [Concomitant]
     Active Substance: CYCLOBENZAPRINE HYDROCHLORIDE
  20. CYCLOBENZAPRINE [Concomitant]
     Active Substance: CYCLOBENZAPRINE

REACTIONS (6)
  - Tardive dyskinesia [Unknown]
  - Nightmare [Not Recovered/Not Resolved]
  - Panic attack [Unknown]
  - Psychomotor hyperactivity [Unknown]
  - Blood pressure increased [Unknown]
  - Diarrhoea [Unknown]
